FAERS Safety Report 5097230-5 (Version None)
Quarter: 2006Q3

REPORT INFORMATION
  Report Type: 
  Country: None (occurrence: None)
  Receive Date: 20060906
  Receipt Date: 20060825
  Transmission Date: 20061208
  Serious: Yes (Other)
  Sender: FDA-Public Use
  Company Number: DE-ROCHE-461456

PATIENT
  Sex: Female

DRUGS (1)
  1. ROFERON-A [Suspect]
     Indication: HEPATITIS C
     Route: 065
     Dates: start: 20010615, end: 20010615

REACTIONS (3)
  - ANTINUCLEAR ANTIBODY INCREASED [None]
  - NEURITIS [None]
  - VASCULITIS [None]
